FAERS Safety Report 19048410 (Version 2)
Quarter: 2021Q1

REPORT INFORMATION
  Report Type: Spontaneous
  Country: US (occurrence: US)
  Receive Date: 20210323
  Receipt Date: 20210331
  Transmission Date: 20210420
  Serious: No
  Sender: FDA-Public Use
  Company Number: US-BEIGENE USA INC-BGN-2021-000681

PATIENT

DRUGS (1)
  1. BRUKINSA [Suspect]
     Active Substance: ZANUBRUTINIB
     Indication: MANTLE CELL LYMPHOMA
     Dosage: 160 MILLIGRAM, BID
     Route: 048
     Dates: start: 20210209, end: 20210219

REACTIONS (4)
  - Pruritus [Recovered/Resolved]
  - Swelling [Recovered/Resolved]
  - Adverse drug reaction [Recovered/Resolved]
  - Urticaria [Recovered/Resolved]

NARRATIVE: CASE EVENT DATE: 20210219
